FAERS Safety Report 11719263 (Version 1)
Quarter: 2015Q4

REPORT INFORMATION
  Report Type: Spontaneous
  Country: US (occurrence: US)
  Receive Date: 20151110
  Receipt Date: 20151110
  Transmission Date: 20160304
  Serious: Yes (Other)
  Sender: FDA-Public Use
  Company Number: US-PFIZER INC-2015379625

PATIENT
  Age: 20 Year
  Sex: Female

DRUGS (5)
  1. VENLAFAXINE HCL [Suspect]
     Active Substance: VENLAFAXINE HYDROCHLORIDE
     Indication: ARTHRALGIA
  2. VYVANSE [Concomitant]
     Active Substance: LISDEXAMFETAMINE DIMESYLATE
     Dosage: UNK
     Dates: start: 2010
  3. VENLAFAXINE HCL [Suspect]
     Active Substance: VENLAFAXINE HYDROCHLORIDE
     Indication: FIBROMYALGIA
     Dosage: 250 (NO UNIT PROVIDED)
     Dates: end: 201407
  4. VENLAFAXINE HCL [Suspect]
     Active Substance: VENLAFAXINE HYDROCHLORIDE
     Indication: BACK PAIN
  5. VENLAFAXINE HCL [Suspect]
     Active Substance: VENLAFAXINE HYDROCHLORIDE
     Indication: MIGRAINE

REACTIONS (10)
  - Intentional self-injury [Recovered/Resolved]
  - Fatigue [Unknown]
  - Disturbance in attention [Unknown]
  - Mental disorder [Unknown]
  - Feeling abnormal [Unknown]
  - Mood altered [Unknown]
  - Amnesia [Unknown]
  - Memory impairment [Unknown]
  - Depression [Recovered/Resolved with Sequelae]
  - Asthenia [Unknown]

NARRATIVE: CASE EVENT DATE: 201403
